FAERS Safety Report 8176362-9 (Version None)
Quarter: 2012Q1

REPORT INFORMATION
  Report Type: 
  Country: None (occurrence: None)
  Receive Date: 20120301
  Receipt Date: 20120222
  Transmission Date: 20120608
  Serious: Yes (Hospitalization)
  Sender: FDA-Public Use
  Company Number: FR-SANOFI-AVENTIS-2012SA012968

PATIENT
  Age: 53 Year
  Sex: Male

DRUGS (1)
  1. CHLOROQUINE PHOSPHATE [Suspect]
     Route: 048

REACTIONS (4)
  - PNEUMONIA [None]
  - CARDIOGENIC SHOCK [None]
  - VENTRICULAR FIBRILLATION [None]
  - INTENTIONAL OVERDOSE [None]
